FAERS Safety Report 5015675-6 (Version None)
Quarter: 2006Q2

REPORT INFORMATION
  Report Type: 
  Country: None (occurrence: None)
  Receive Date: 20060601
  Receipt Date: 20060522
  Transmission Date: 20061013
  Serious: Yes (Other)
  Sender: FDA-Public Use
  Company Number: JP-JPN-A200601661

PATIENT
  Age: 29 Year
  Sex: Male

DRUGS (4)
  1. PAXIL [Suspect]
     Dosage: 20MG PER DAY
     Route: 048
     Dates: start: 20060405
  2. MYSLEE [Concomitant]
     Dosage: 5MG TWICE PER DAY
     Route: 048
  3. LENDORMIN [Concomitant]
     Dosage: .5MG PER DAY
     Route: 048
  4. SOLANAX [Concomitant]
     Dosage: .4MG THREE TIMES PER DAY
     Route: 048

REACTIONS (4)
  - CONVULSION [None]
  - FALL [None]
  - LACERATION [None]
  - SKIN INJURY [None]
